FAERS Safety Report 25806844 (Version 1)
Quarter: 2025Q3

REPORT INFORMATION
  Report Type: Spontaneous
  Country: EU (occurrence: EU)
  Receive Date: 20250916
  Receipt Date: 20250916
  Transmission Date: 20251021
  Serious: Yes (Death, Other)
  Sender: CHEPLAPHARM
  Company Number: EU-CHEPLA-2025010772

PATIENT
  Age: 76 Year
  Sex: Male

DRUGS (6)
  1. QUETIAPINE [Suspect]
     Active Substance: QUETIAPINE
  2. TRAZODONE [Suspect]
     Active Substance: TRAZODONE HYDROCHLORIDE
     Dosage: DAILY DOSE: 50 MILLIGRAM
  3. DULOXETINE HYDROCHLORIDE [Suspect]
     Active Substance: DULOXETINE HYDROCHLORIDE
     Dosage: DAILY DOSE: 30 MILLIGRAM
  4. GABAPENTIN [Suspect]
     Active Substance: GABAPENTIN
     Dosage: EVERY 8 HOURS?DAILY DOSE: 900 MILLIGRAM
  5. LORMETAZEPAM [Suspect]
     Active Substance: LORMETAZEPAM
     Dosage: AT BEDTIME
  6. DIAZEPAM [Suspect]
     Active Substance: DIAZEPAM
     Dosage: DAILY DOSE: 5 MILLIGRAM

REACTIONS (11)
  - Neuroleptic malignant syndrome [Unknown]
  - Renal tubular dysfunction [Unknown]
  - Cardiac arrest [Fatal]
  - Hypoxia [Unknown]
  - Hypokalaemia [Unknown]
  - Condition aggravated [Unknown]
  - Mental status changes [Unknown]
  - Hypernatraemia [Unknown]
  - Hypocalcaemia [Unknown]
  - Leukocytosis [Unknown]
  - Haemodynamic instability [Unknown]
